FAERS Safety Report 7054982-2 (Version None)
Quarter: 2010Q4

REPORT INFORMATION
  Report Type: 
  Country: None (occurrence: None)
  Receive Date: 20101021
  Receipt Date: 20100922
  Transmission Date: 20110411
  Serious: Yes (Hospitalization)
  Sender: FDA-Public Use
  Company Number: GB-JNJFOC-20100105725

PATIENT
  Age: 83 Year
  Sex: Female

DRUGS (5)
  1. ACETAMINOPHEN AND CODEINE PHOSPHATE [Suspect]
     Indication: PAIN
     Route: 048
  2. CELECOXIB [Concomitant]
     Route: 065
  3. CORTICOSTEROIDS [Concomitant]
     Route: 065
  4. PAMIDRONIC ACID [Concomitant]
     Dosage: 1 DF/4/1 TRIMESTER
     Route: 065
  5. PARACETAMOL [Concomitant]
     Route: 065

REACTIONS (5)
  - DIZZINESS [None]
  - FEELING HOT [None]
  - FLUSHING [None]
  - HYPERHIDROSIS [None]
  - HYPERSENSITIVITY [None]
